FAERS Safety Report 6677944-3 (Version None)
Quarter: 2010Q2

REPORT INFORMATION
  Report Type: 
  Country: None (occurrence: None)
  Receive Date: 20100412
  Receipt Date: 20100330
  Transmission Date: 20101027
  Serious: Yes (Death, Other)
  Sender: FDA-Public Use
  Company Number: US-ELI_LILLY_AND_COMPANY-US201002001616

PATIENT
  Age: 71 Year
  Sex: Male

DRUGS (3)
  1. EFFIENT [Suspect]
     Indication: ACUTE MYOCARDIAL INFARCTION
     Dosage: 10 MG, UNK
     Dates: start: 20100128, end: 20100128
  2. ASPIRIN [Concomitant]
     Indication: ACUTE MYOCARDIAL INFARCTION
     Dosage: 325 MG, DAILY (1/D)
  3. ANTIHYPERTENSIVES [Concomitant]

REACTIONS (4)
  - ANXIETY [None]
  - DRUG DOSE OMISSION [None]
  - HAEMORRHAGE INTRACRANIAL [None]
  - HYPERTENSION [None]
